FAERS Safety Report 4953529-1 (Version None)
Quarter: 2006Q1

REPORT INFORMATION
  Report Type: 
  Country: None (occurrence: None)
  Receive Date: 20060324
  Receipt Date: 20060208
  Transmission Date: 20060701
  Serious: Yes (Life-Threatening)
  Sender: FDA-Public Use
  Company Number: JP-ROCHE-436380

PATIENT
  Age: 38 Year
  Sex: Male
  Weight: 60 kg

DRUGS (7)
  1. TAMIFLU [Suspect]
     Route: 048
     Dates: start: 20060205, end: 20060205
  2. TAMIFLU [Suspect]
     Route: 048
     Dates: start: 20060131, end: 20060131
  3. TAMIFLU [Suspect]
     Route: 048
     Dates: start: 20060201, end: 20060204
  4. ACETAMINOPHEN [Suspect]
     Indication: INFLAMMATION
     Dosage: REPORTED AS CALSIL. INDICATION REPORTED AS INFLAMMATION AND PAIN.
     Route: 048
     Dates: start: 20060131, end: 20060204
  5. LOXOPROFEN SODIUM [Suspect]
     Indication: INFLAMMATION
     Dosage: REPORTED AS LOXONIN. INDICATION REPORTED AS INFLAMMATION AND PAIN.
     Route: 048
     Dates: start: 20060203, end: 20060205
  6. EPERISONE HYDROCHLORIDE [Suspect]
     Indication: PAIN
     Dosage: REPORTED AS EPENARD.
     Route: 048
     Dates: start: 20060203, end: 20060205
  7. ROXITHROMYCIN [Suspect]
     Indication: INFECTION
     Route: 048
     Dates: start: 20060203, end: 20060205

REACTIONS (3)
  - HEPATIC FUNCTION ABNORMAL [None]
  - LEUKOPENIA [None]
  - THROMBOCYTOPENIA [None]
